FAERS Safety Report 4630153-1 (Version None)
Quarter: 2005Q2

REPORT INFORMATION
  Report Type: 
  Country: None (occurrence: None)
  Receive Date: 20050406
  Receipt Date: 20050321
  Transmission Date: 20051028
  Serious: Yes (Death)
  Sender: FDA-Public Use
  Company Number: 10692

PATIENT
  Age: 83 Year
  Sex: Female

DRUGS (5)
  1. METHOTREXATE [Suspect]
  2. CYCLOSPORINE [Suspect]
  3. AZATHIOPRINE [Suspect]
  4. ETANERCEPT [Suspect]
  5. SODIUM AUROTHIOMALATE [Suspect]

REACTIONS (1)
  - NEOPLASM MALIGNANT [None]
